FAERS Safety Report 4739582-9 (Version None)
Quarter: 2005Q3

REPORT INFORMATION
  Report Type: 
  Country: None (occurrence: None)
  Receive Date: 20050810
  Receipt Date: 20050406
  Transmission Date: 20060218
  Serious: No
  Sender: FDA-Public Use
  Company Number: US-GLAXOSMITHKLINE-A0553031A

PATIENT
  Age: 61 Year
  Sex: Male

DRUGS (4)
  1. PAXIL [Suspect]
     Indication: DEPRESSION
     Dosage: 10MG PER DAY
     Route: 048
     Dates: start: 20040101, end: 20040101
  2. BUSPAR [Concomitant]
  3. THYROID TAB [Concomitant]
  4. PAXIL CR [Concomitant]
     Route: 048

REACTIONS (2)
  - FEELING ABNORMAL [None]
  - VISION BLURRED [None]
